FAERS Safety Report 6930762-0 (Version None)
Quarter: 2010Q3

REPORT INFORMATION
  Report Type: 
  Country: None (occurrence: None)
  Receive Date: 20100818
  Receipt Date: 20100818
  Transmission Date: 20110219
  Serious: No
  Sender: FDA-Public Use
  Company Number: None

PATIENT
  Age: 43 Year
  Sex: Female
  Weight: 58.0604 kg

DRUGS (8)
  1. MIRENA [Suspect]
     Indication: CONTRACEPTION
     Dates: start: 20091201, end: 20100802
  2. DETROL [Concomitant]
  3. FLEXERIL [Concomitant]
  4. MACROBID [Concomitant]
  5. CIPROFLOXACIN [Concomitant]
  6. PHENAZOPYRIDINE HCL TAB [Concomitant]
  7. VESICARE [Concomitant]
  8. URELLE [Concomitant]

REACTIONS (1)
  - CYSTITIS INTERSTITIAL [None]
